FAERS Safety Report 6222620-4 (Version None)
Quarter: 2009Q2

REPORT INFORMATION
  Report Type: 
  Country: None (occurrence: None)
  Receive Date: 20090611
  Receipt Date: 20090604
  Transmission Date: 20091009
  Serious: Yes (Hospitalization)
  Sender: FDA-Public Use
  Company Number: FR-NOVOPROD-287284

PATIENT
  Age: 80 Year
  Sex: Female

DRUGS (17)
  1. NOVOMIX 30 FLEXPEN [Suspect]
     Indication: TYPE 2 DIABETES MELLITUS
     Dosage: 28 IU, QD
     Route: 058
     Dates: end: 20090401
  2. TAHOR [Suspect]
     Indication: DRUG USE FOR UNKNOWN INDICATION
     Dosage: 20 MG, QD
     Route: 048
     Dates: end: 20090402
  3. PAROXETINE HCL [Suspect]
     Indication: DRUG USE FOR UNKNOWN INDICATION
     Dosage: 40 MG, QD
     Route: 048
     Dates: start: 20080919
  4. NICARDIPINE HCL [Concomitant]
     Indication: DRUG USE FOR UNKNOWN INDICATION
     Dosage: 100 MG, QD
  5. NITRODERM [Concomitant]
     Indication: DRUG USE FOR UNKNOWN INDICATION
  6. CAPTOPRIL [Concomitant]
     Indication: DRUG USE FOR UNKNOWN INDICATION
  7. LEVOTHYROX [Concomitant]
     Indication: DRUG USE FOR UNKNOWN INDICATION
  8. SPECIAFOLDINE [Concomitant]
     Indication: DRUG USE FOR UNKNOWN INDICATION
  9. TEMESTA                            /00273201/ [Concomitant]
     Indication: DRUG USE FOR UNKNOWN INDICATION
  10. CACIT                              /00108001/ [Concomitant]
     Indication: DRUG USE FOR UNKNOWN INDICATION
  11. CERIS [Concomitant]
     Indication: DRUG USE FOR UNKNOWN INDICATION
  12. KARDEGIC                           /00002703/ [Concomitant]
     Indication: DRUG USE FOR UNKNOWN INDICATION
     Dosage: 75 MG, QD
  13. PROTELOS                           /01556702/ [Concomitant]
     Indication: DRUG USE FOR UNKNOWN INDICATION
  14. FORLAX [Concomitant]
     Indication: DRUG USE FOR UNKNOWN INDICATION
  15. CONTRAMAL [Concomitant]
     Indication: DRUG USE FOR UNKNOWN INDICATION
  16. INEXIUM                            /01479302/ [Concomitant]
     Indication: DRUG USE FOR UNKNOWN INDICATION
  17. TEMERIT                            /01339101/ [Concomitant]
     Indication: DRUG USE FOR UNKNOWN INDICATION
     Dosage: 10 MG, QD
     Route: 048

REACTIONS (3)
  - HYPOGLYCAEMIA [None]
  - HYPOTHERMIA [None]
  - ORTHOSTATIC HYPOTENSION [None]
